FAERS Safety Report 4915817-4 (Version None)
Quarter: 2006Q1

REPORT INFORMATION
  Report Type: 
  Country: None (occurrence: None)
  Receive Date: 20060217
  Receipt Date: 20050928
  Transmission Date: 20060701
  Serious: Yes (Hospitalization, Disabling)
  Sender: FDA-Public Use
  Company Number: US-ROCHE-419578

PATIENT
  Age: 22 Year
  Sex: Male
  Weight: 62.1 kg

DRUGS (1)
  1. ACCUTANE [Suspect]
     Indication: ACNE
     Route: 048
     Dates: start: 19840715, end: 19841215

REACTIONS (43)
  - ACNE [None]
  - ANAEMIA [None]
  - ANHEDONIA [None]
  - ANXIETY [None]
  - ARTHRALGIA [None]
  - BACTERIA STOOL IDENTIFIED [None]
  - BUNDLE BRANCH BLOCK RIGHT [None]
  - CHEST PAIN [None]
  - CHRONIC FATIGUE SYNDROME [None]
  - COLITIS ULCERATIVE [None]
  - CONDITION AGGRAVATED [None]
  - CROHN'S DISEASE [None]
  - DEPRESSION [None]
  - DISEASE RECURRENCE [None]
  - EPIDIDYMAL CYST [None]
  - FUNGAL RASH [None]
  - GASTRIC DISORDER [None]
  - GASTROINTESTINAL DISORDER [None]
  - GASTROINTESTINAL NECROSIS [None]
  - HAEMATURIA [None]
  - HYPOGLYCAEMIA [None]
  - INFLAMMATORY BOWEL DISEASE [None]
  - INTESTINAL HAEMORRHAGE [None]
  - INTESTINAL OBSTRUCTION [None]
  - IRON DEFICIENCY ANAEMIA [None]
  - IRRITABLE BOWEL SYNDROME [None]
  - MUSCLE ATROPHY [None]
  - NAUSEA [None]
  - OBSTRUCTION GASTRIC [None]
  - PANCREATIC ENLARGEMENT [None]
  - PANCREATITIS [None]
  - PEPTIC ULCER [None]
  - POSTOPERATIVE ABSCESS [None]
  - RHONCHI [None]
  - ROTATOR CUFF SYNDROME [None]
  - SCAR [None]
  - SCIATICA [None]
  - SINUS BRADYCARDIA [None]
  - STITCH ABSCESS [None]
  - TRANSFUSION REACTION [None]
  - TREATMENT NONCOMPLIANCE [None]
  - URTICARIA [None]
  - VARICOCELE [None]
